FAERS Safety Report 13617817 (Version 1)
Quarter: 2017Q2

REPORT INFORMATION
  Report Type: Spontaneous
  Country: US (occurrence: US)
  Receive Date: 20170606
  Receipt Date: 20170606
  Transmission Date: 20170830
  Serious: Yes (Hospitalization)
  Sender: FDA-Public Use
  Company Number: US-CONCORDIA PHARMACEUTICALS INC.-GSH201706-003280

PATIENT
  Age: 76 Year
  Sex: Male

DRUGS (1)
  1. KAYEXALATE [Suspect]
     Active Substance: SODIUM POLYSTYRENE SULFONATE
     Indication: PRODUCT USED FOR UNKNOWN INDICATION
     Route: 065

REACTIONS (5)
  - Haematemesis [Recovered/Resolved]
  - Gastrointestinal ischaemia [Recovered/Resolved]
  - Oesophagogastroduodenoscopy abnormal [Recovered/Resolved]
  - Biopsy stomach abnormal [Recovered/Resolved]
  - Gastric disorder [Recovered/Resolved]
